FAERS Safety Report 8594139-7 (Version None)
Quarter: 2012Q3

REPORT INFORMATION
  Report Type: 
  Country: None (occurrence: None)
  Receive Date: 20120814
  Receipt Date: 20120807
  Transmission Date: 20120928
  Serious: Yes (Hospitalization)
  Sender: FDA-Public Use
  Company Number: PHHY2012IN069006

PATIENT
  Age: 42 Year
  Sex: Male

DRUGS (8)
  1. PREDNISOLONE [Concomitant]
     Dosage: 12.5 MG, PER DAY
  2. CYCLOSPORINE [Suspect]
     Dosage: 8 MG/KG, PER DAY IN 2 DIVIDED DOSES
  3. PREDNISOLONE [Concomitant]
     Dosage: 20 MG, PER DAY
  4. MYCOPHENOLATE MOFETIL [Concomitant]
     Dosage: 1 G, BID
  5. CYCLOSPORINE [Suspect]
     Dosage: 3 MG/KG, PER DAY
  6. BASILIXIMAB [Suspect]
     Indication: RENAL TRANSPLANT
     Dosage: 20 MG, ONCE/SINGLE
  7. BASILIXIMAB [Suspect]
     Dosage: 20 MG, ONCE/SINGLE
  8. METHYLPREDNISOLONE [Concomitant]
     Dosage: 15 MG/KG, PER DAY

REACTIONS (12)
  - RENAL ANEURYSM [None]
  - ASPERGILLOSIS [None]
  - ESCHERICHIA INFECTION [None]
  - CHILLS [None]
  - PYREXIA [None]
  - CITROBACTER INFECTION [None]
  - RENAL NECROSIS [None]
  - PRODUCTIVE COUGH [None]
  - HEART RATE INCREASED [None]
  - HAEMATURIA [None]
  - DYSPNOEA [None]
  - DYSURIA [None]
